FAERS Safety Report 12099454 (Version 1)
Quarter: 2016Q1

REPORT INFORMATION
  Report Type: Spontaneous
  Country: US (occurrence: US)
  Receive Date: 20160222
  Receipt Date: 20160222
  Transmission Date: 20160526
  Serious: No
  Sender: FDA-Public Use
  Company Number: US-TEVA-628403USA

PATIENT
  Sex: Male
  Weight: 13.62 kg

DRUGS (1)
  1. AMOXICILLIN. [Suspect]
     Active Substance: AMOXICILLIN
     Indication: EAR INFECTION
     Dates: start: 20151221, end: 20151227

REACTIONS (4)
  - Areflexia [Recovered/Resolved]
  - Language disorder [Recovered/Resolved]
  - Irritability [Recovered/Resolved]
  - Social avoidant behaviour [Recovered/Resolved]
